FAERS Safety Report 9201618 (Version 2)
Quarter: 2013Q2

REPORT INFORMATION
  Report Type: Report from Study
  Country: CA (occurrence: CA)
  Receive Date: 20130401
  Receipt Date: 20130408
  Transmission Date: 20140414
  Serious: Yes (Other)
  Sender: FDA-Public Use
  Company Number: PHHY2013CA030970

PATIENT
  Age: 82 Year
  Sex: Female

DRUGS (2)
  1. ACLASTA [Suspect]
     Indication: OSTEOPOROSIS
     Dosage: 5 MG/100ML
     Route: 042
     Dates: start: 20100313
  2. ACLASTA [Suspect]
     Dosage: 5 MG/10ML
     Route: 042
     Dates: start: 20130328

REACTIONS (3)
  - Fall [Recovered/Resolved]
  - Foot fracture [Recovered/Resolved]
  - Ligament sprain [Recovered/Resolved]
